FAERS Safety Report 18571968 (Version 1)
Quarter: 2020Q4

REPORT INFORMATION
  Report Type: Spontaneous
  Country: US (occurrence: US)
  Receive Date: 20201203
  Receipt Date: 20201203
  Transmission Date: 20210114
  Serious: No
  Sender: FDA-Public Use
  Company Number: US-JNJFOC-20201137682

PATIENT
  Age: 62 Year
  Sex: Female

DRUGS (2)
  1. STELARA [Suspect]
     Active Substance: USTEKINUMAB
     Route: 042
     Dates: start: 20200818
  2. STELARA [Suspect]
     Active Substance: USTEKINUMAB
     Indication: COLITIS ULCERATIVE
     Route: 058

REACTIONS (3)
  - Herpes zoster [Recovering/Resolving]
  - Off label use [Unknown]
  - Inappropriate schedule of product administration [Unknown]

NARRATIVE: CASE EVENT DATE: 2020
